FAERS Safety Report 12051174 (Version 3)
Quarter: 2016Q4

REPORT INFORMATION
  Report Type: Spontaneous
  Country: US (occurrence: US)
  Receive Date: 20160209
  Receipt Date: 20161206
  Transmission Date: 20170206
  Serious: No
  Sender: FDA-Public Use
  Company Number: US-PFIZER INC-2016063052

PATIENT
  Age: 53 Year
  Sex: Female

DRUGS (17)
  1. LYRICA [Suspect]
     Active Substance: PREGABALIN
     Indication: FIBROMYALGIA
     Dosage: 100 MG, 2X/DAY
     Route: 048
     Dates: start: 20111107
  2. SOMA [Concomitant]
     Active Substance: CARISOPRODOL
     Indication: FIBROMYALGIA
     Dosage: 350 MG, AS NEEDED, (TAKE 1 TABLET 3 TIMES DAILY AS NEEDED)
     Route: 048
     Dates: start: 20150519
  3. CYMBALTA [Concomitant]
     Active Substance: DULOXETINE HYDROCHLORIDE
     Indication: GENERALISED ANXIETY DISORDER
     Dosage: 60 MG, DAILY, (TAKE 1 CAPSULE DAILY AS DIRECTED)
     Route: 048
     Dates: start: 20110615
  4. LEVOTHYROXINE SODIUM. [Concomitant]
     Active Substance: LEVOTHYROXINE SODIUM
     Indication: HYPERTHYROIDISM
     Dosage: 125 UG, DAILY
     Route: 048
     Dates: start: 20100524
  5. SYNTHROID [Concomitant]
     Active Substance: LEVOTHYROXINE SODIUM
     Dosage: UNK
     Dates: start: 2012
  6. OMEPRAZOLE. [Concomitant]
     Active Substance: OMEPRAZOLE
     Indication: GASTROOESOPHAGEAL REFLUX DISEASE
     Dosage: 20 MG, DAILY, (AS DIRECTED)
     Route: 048
     Dates: start: 20120424
  7. LYRICA [Suspect]
     Active Substance: PREGABALIN
     Indication: PAIN
  8. CLOTRIMAZOLE AND BETAMETHASONE [Concomitant]
     Active Substance: BETAMETHASONE\CLOTRIMAZOLE
     Indication: SKIN IRRITATION
     Dosage: [CLOTRIMAZOLE 1 %] [BETAMETHASONE 0.05 %] AS NEEDED
     Dates: start: 20151021
  9. SOMA [Concomitant]
     Active Substance: CARISOPRODOL
     Indication: PAIN
  10. MORPHINE SULPHATE [Concomitant]
     Active Substance: MORPHINE SULFATE
     Indication: PAIN
     Dosage: 30 MG, 2X/DAY
     Route: 048
     Dates: start: 20140610
  11. CYMBALTA [Concomitant]
     Active Substance: DULOXETINE HYDROCHLORIDE
     Indication: FIBROMYALGIA
  12. SUMATRIPTAN SUCCINATE. [Concomitant]
     Active Substance: SUMATRIPTAN SUCCINATE
     Indication: MIGRAINE
     Dosage: 100 MG, (TAKE 1 TABLET AT ONSET OF HEADACHE, MAY REPEAT IN 2 HOURS AS DIRECTED)
     Route: 048
     Dates: start: 20141008
  13. ALPRAZOLAM. [Concomitant]
     Active Substance: ALPRAZOLAM
     Indication: GENERALISED ANXIETY DISORDER
     Dosage: 0.5 MG, AS NEEDED, (TAKE 1 TABLET DAILY AS NEEDED)
     Route: 048
     Dates: start: 20070111
  14. LYRICA [Suspect]
     Active Substance: PREGABALIN
     Indication: NERVE INJURY
     Dosage: 100 MG, 2X/DAY
     Route: 048
     Dates: start: 2007
  15. FEXOFENADINE HCL [Concomitant]
     Active Substance: FEXOFENADINE HYDROCHLORIDE
     Dosage: 180 MG, DAILY
     Route: 048
     Dates: start: 20160404
  16. CYMBALTA [Concomitant]
     Active Substance: DULOXETINE HYDROCHLORIDE
     Indication: OSTEOARTHRITIS
  17. LIPITOR [Concomitant]
     Active Substance: ATORVASTATIN CALCIUM
     Indication: HYPERLIPIDAEMIA
     Dosage: 40 MG, DAILY, (TAKE 1 TABLET DAILY AT BEDTIME)
     Route: 048
     Dates: start: 20120920

REACTIONS (5)
  - Pain [Recovered/Resolved]
  - Restlessness [Recovered/Resolved]
  - Tremor [Unknown]
  - Withdrawal syndrome [Recovered/Resolved]
  - Chills [Unknown]

NARRATIVE: CASE EVENT DATE: 201306
